FAERS Safety Report 25253795 (Version 2)
Quarter: 2025Q4

REPORT INFORMATION
  Report Type: Spontaneous
  Country: CA (occurrence: CA)
  Receive Date: 20250430
  Receipt Date: 20251113
  Transmission Date: 20260117
  Serious: Yes (Life-Threatening, Hospitalization, Other)
  Sender: Kenvue
  Company Number: CA-KENVUE-20250407994

PATIENT

DRUGS (2)
  1. ACETAMINOPHEN [Suspect]
     Active Substance: ACETAMINOPHEN
     Indication: Intensive care
     Dosage: GASTRIC AND NASOGASTRIC TUBES
     Route: 050
     Dates: start: 202303, end: 202305
  2. PAROL [Suspect]
     Active Substance: ACETAMINOPHEN
     Indication: Intensive care
     Dosage: GASTRIC AND NASOGASTRIC TUBES
     Route: 050
     Dates: start: 202303, end: 202305

REACTIONS (2)
  - Device occlusion [Unknown]
  - Off label use [Unknown]

NARRATIVE: CASE EVENT DATE: 20230301
